FAERS Safety Report 6414077-5 (Version None)
Quarter: 2009Q4

REPORT INFORMATION
  Report Type: 
  Country: None (occurrence: None)
  Receive Date: 20091022
  Receipt Date: 20091022
  Transmission Date: 20100525
  Serious: Yes (Hospitalization, Other)
  Sender: FDA-Public Use
  Company Number: None

PATIENT
  Age: 80 Year
  Sex: Female

DRUGS (5)
  1. MEVACOR [Suspect]
  2. PREDNISONE TAB [Concomitant]
  3. HEARTBURN PILL [Concomitant]
  4. ADVIL [Concomitant]
  5. SOMA [Concomitant]

REACTIONS (1)
  - RHABDOMYOLYSIS [None]
